FAERS Safety Report 23521679 (Version 1)
Quarter: 2024Q1

REPORT INFORMATION
  Report Type: 
  Country: None (occurrence: None)
  Receive Date: 20240214
  Receipt Date: 20240214
  Transmission Date: 20240410
  Serious: No
  Sender: FDA-Public Use
  Company Number: CA-ROCHE-3503826

PATIENT

DRUGS (5)
  1. OCRELIZUMAB [Suspect]
     Active Substance: OCRELIZUMAB
  2. DESOXIMETASONE [Suspect]
     Active Substance: DESOXIMETASONE
  3. COLCHICINE [Concomitant]
     Active Substance: COLCHICINE
  4. GUSELKUMAB [Concomitant]
     Active Substance: GUSELKUMAB
  5. METHOTREXATE [Concomitant]
     Active Substance: METHOTREXATE

REACTIONS (18)
  - Abdominal pain [None]
  - Arthralgia [None]
  - Back pain [None]
  - Bronchitis [None]
  - COVID-19 [None]
  - Dizziness [None]
  - Dysphemia [None]
  - Fatigue [None]
  - Gait disturbance [None]
  - Headache [None]
  - Hypophagia [None]
  - Immunoglobulins decreased [None]
  - Malaise [None]
  - Myocarditis [None]
  - Nasopharyngitis [None]
  - Nausea [None]
  - Pain [None]
  - Palpitations [None]
